FAERS Safety Report 9946994 (Version 1)
Quarter: 2014Q1

REPORT INFORMATION
  Report Type: Report from Study
  Country: US (occurrence: US)
  Receive Date: 20140303
  Receipt Date: 20140303
  Transmission Date: 20141002
  Serious: No
  Sender: FDA-Public Use
  Company Number: US-ABBVIE-13P-163-1062186-00

PATIENT
  Age: 47 Year
  Sex: Male

DRUGS (3)
  1. HUMIRA [Suspect]
     Indication: ANKYLOSING SPONDYLITIS
     Dates: start: 201207
  2. NAPROXYN [Concomitant]
     Indication: ANKYLOSING SPONDYLITIS
  3. OMEPRAZOLE [Concomitant]
     Indication: GASTRIC DISORDER
     Dosage: 20MG DAILY

REACTIONS (3)
  - Dental caries [Not Recovered/Not Resolved]
  - Tooth extraction [Not Recovered/Not Resolved]
  - Localised infection [Not Recovered/Not Resolved]
